FAERS Safety Report 14955743 (Version 2)
Quarter: 2018Q3

REPORT INFORMATION
  Report Type: Spontaneous
  Country: DE (occurrence: DE)
  Receive Date: 20180531
  Receipt Date: 20180816
  Transmission Date: 20181010
  Serious: Yes (Other)
  Sender: FDA-Public Use
  Company Number: DE-AUROBINDO-AUR-APL-2018-014545

PATIENT
  Age: 74 Year
  Sex: Female
  Weight: 74 kg

DRUGS (2)
  1. RAMIPRIL PUREN 2.5 MG TABLET [Suspect]
     Active Substance: RAMIPRIL
     Indication: ISCHAEMIC HEART DISEASE PROPHYLAXIS
     Dosage: 0.5 DOSAGE FORM
     Route: 048
     Dates: start: 20180119, end: 20180126
  2. METOHEXAL SUCC [Concomitant]
     Active Substance: METOPROLOL SUCCINATE
     Indication: ISCHAEMIC HEART DISEASE PROPHYLAXIS
     Dosage: LANGJ?HRIGE ANWENDUNG
     Route: 048

REACTIONS (5)
  - Hyperhidrosis [Recovered/Resolved]
  - Inflammatory bowel disease [Recovered/Resolved]
  - Abdominal distension [Recovered/Resolved]
  - Fatigue [Recovered/Resolved]
  - Product substitution issue [Unknown]

NARRATIVE: CASE EVENT DATE: 20180119
